FAERS Safety Report 16589679 (Version 1)
Quarter: 2019Q3

REPORT INFORMATION
  Report Type: Report from Study
  Country: US (occurrence: US)
  Receive Date: 20190718
  Receipt Date: 20190718
  Transmission Date: 20191004
  Serious: Yes (Hospitalization)
  Sender: FDA-Public Use
  Company Number: US-SWEDISH ORPHAN BIOVITRUM-2019US0657

PATIENT
  Sex: Male

DRUGS (3)
  1. KINERET [Suspect]
     Active Substance: ANAKINRA
     Dosage: 16JUN2008: 1.45 MG/KG/DAY (10.25 KG)?08DEC2018: 1.41 MG/KG/DAY (10.55 KG)
     Dates: start: 20080616
  2. KINERET [Suspect]
     Active Substance: ANAKINRA
     Indication: DEFICIENCY OF THE INTERLEUKIN-1 RECEPTOR ANTAGONIST
     Dosage: ON 08OCT2007: 1.09 MG/KG/DAY (WEIGHT = 8.21 KG),?06NOV2007: 1.08 MG/KG/DAY (WEIGHT = 8,27KG)?4FEB200
     Dates: start: 20071008
  3. KINERET [Suspect]
     Active Substance: ANAKINRA
     Dosage: 4 MG/KG/DAY(10.55 KG)?ANAKINRA DOSE AT DISCHARGED: INCREASED IN THE CONTEXT OF INFECTION 4 MG/KG/DAY
     Dates: start: 20181208

REACTIONS (1)
  - Catheter site cellulitis [Unknown]

NARRATIVE: CASE EVENT DATE: 20081202
